FAERS Safety Report 5449732-7 (Version None)
Quarter: 2007Q3

REPORT INFORMATION
  Report Type: 
  Country: None (occurrence: None)
  Receive Date: 20070910
  Receipt Date: 20060828
  Transmission Date: 20080115
  Serious: Yes (Hospitalization)
  Sender: FDA-Public Use
  Company Number: 2006P1000247

PATIENT
  Age: 81 Year
  Sex: Female

DRUGS (13)
  1. PLACEBO (PLACEBO) [Suspect]
     Indication: ACUTE MYOCARDIAL INFARCTION
     Dosage: 5 IU;X1;IV; 0.25 MG/KG;X1;IV
     Route: 042
     Dates: start: 20051214, end: 20051214
  2. PLACEBO (PLACEBO) [Suspect]
     Indication: ACUTE MYOCARDIAL INFARCTION
     Dosage: 5 IU;X1;IV; 0.25 MG/KG;X1;IV
     Route: 042
     Dates: start: 20051214, end: 20051214
  3. ABCIXIMAB (ABCIXIMAB) [Suspect]
     Indication: ACUTE MYOCARDIAL INFARCTION
     Dosage: 8.8 MG;X1;IV; 180 MG;X1;IV
     Route: 042
     Dates: start: 20051214, end: 20051214
  4. ABCIXIMAB (ABCIXIMAB) [Suspect]
     Indication: ACUTE MYOCARDIAL INFARCTION
     Dosage: 8.8 MG;X1;IV; 180 MG;X1;IV
     Route: 042
     Dates: start: 20051214, end: 20051214
  5. CLOPIDOGREL [Concomitant]
  6. ASPIRIN [Concomitant]
  7. METOPROLOL SUCCINATE [Concomitant]
  8. RAMIPRIL [Concomitant]
  9. FLUVASTATIN [Concomitant]
  10. SPIRONOLACTONE [Concomitant]
  11. FAMOTIDINE [Concomitant]
  12. OMEPRAZOLE [Concomitant]
  13. CARVEDILOL [Concomitant]

REACTIONS (21)
  - ANOREXIA [None]
  - ARTHRITIS [None]
  - ASTHENIA [None]
  - BLOOD PRESSURE DIASTOLIC DECREASED [None]
  - BLOOD PRESSURE FLUCTUATION [None]
  - BRADYCARDIA [None]
  - DIZZINESS [None]
  - HEART RATE IRREGULAR [None]
  - HYPOKINESIA [None]
  - HYPOTENSION [None]
  - JOINT EFFUSION [None]
  - PRESYNCOPE [None]
  - PRODUCTIVE COUGH [None]
  - SUPRAVENTRICULAR EXTRASYSTOLES [None]
  - SYNOVIAL CYST [None]
  - SYNOVITIS [None]
  - URINARY INCONTINENCE [None]
  - VENTRICULAR EXTRASYSTOLES [None]
  - VENTRICULAR FIBRILLATION [None]
  - VERTIGO [None]
  - WEIGHT DECREASED [None]
